FAERS Safety Report 8071879-X (Version None)
Quarter: 2012Q1

REPORT INFORMATION
  Report Type: 
  Country: None (occurrence: None)
  Receive Date: 20120126
  Receipt Date: 20120117
  Transmission Date: 20120608
  Serious: No
  Sender: FDA-Public Use
  Company Number: US-BIOGENIDEC-2012BI000734

PATIENT
  Age: 33 Year
  Sex: Female

DRUGS (6)
  1. CYMBALTA [Concomitant]
     Indication: DEPRESSION
     Dates: start: 20120101
  2. AVONEX [Suspect]
     Indication: MULTIPLE SCLEROSIS
     Route: 030
     Dates: start: 20000106
  3. PRILOSEC OTC [Concomitant]
     Indication: PEPTIC ULCER
  4. PROZAC [Concomitant]
     Indication: DEPRESSION
     Dates: start: 20000101, end: 20110101
  5. AVONEX [Suspect]
     Route: 030
     Dates: start: 20030101
  6. BIRTH CONTROL (NOS) [Concomitant]
     Indication: CONTRACEPTION
     Route: 048
     Dates: start: 20120110, end: 20120115

REACTIONS (15)
  - EYE PAIN [None]
  - OEDEMA PERIPHERAL [None]
  - ABDOMINAL PAIN UPPER [None]
  - NEURALGIA [None]
  - LOCAL SWELLING [None]
  - VISUAL IMPAIRMENT [None]
  - PAIN IN EXTREMITY [None]
  - ANXIETY [None]
  - CONSTIPATION [None]
  - PARAESTHESIA [None]
  - OCULAR HYPERAEMIA [None]
  - EYE SWELLING [None]
  - VISION BLURRED [None]
  - EYE IRRITATION [None]
  - GAIT DISTURBANCE [None]
